FAERS Safety Report 22541945 (Version 2)
Quarter: 2024Q4

REPORT INFORMATION
  Report Type: Spontaneous
  Country: FR (occurrence: FR)
  Receive Date: 20230609
  Receipt Date: 20241028
  Transmission Date: 20250115
  Serious: Yes (Life-Threatening, Other)
  Sender: FRESENIUS KABI
  Company Number: FR-AFSSAPS-AN2023000683

PATIENT
  Age: 57 Year
  Sex: Female

DRUGS (3)
  1. LIDOCAINE HYDROCHLORIDE [Suspect]
     Active Substance: LIDOCAINE HYDROCHLORIDE
     Indication: Induction of anaesthesia
     Dosage: 60 MILLIGRAM, 1 DOSAGE TOTAL?FORM OF ADMIN: UNKNOWN
     Route: 042
     Dates: start: 20230512, end: 20230512
  2. DIPRIVAN [Suspect]
     Active Substance: PROPOFOL
     Indication: Induction of anaesthesia
     Dosage: 350 MILLIGRAM, 1 DOSAGE TOTAL?FORM OF ADMIN: EMULSION FOR INJECTION
     Route: 042
     Dates: start: 20230512, end: 20230512
  3. SUCCINYLCHOLINE [Suspect]
     Active Substance: SUCCINYLCHOLINE\SUCCINYLCHOLINE CHLORIDE
     Indication: Induction of anaesthesia
     Dosage: 90 MILLIGRAM, 1 DOSAGE TOTAL
     Route: 042
     Dates: start: 20230512, end: 20230512

REACTIONS (1)
  - Anaphylactic shock [Recovered/Resolved]

NARRATIVE: CASE EVENT DATE: 20230512
